FAERS Safety Report 6463973-1 (Version None)
Quarter: 2009Q4

REPORT INFORMATION
  Report Type: 
  Country: None (occurrence: None)
  Receive Date: 20091130
  Receipt Date: 20091130
  Transmission Date: 20100525
  Serious: Yes (Life-Threatening, Hospitalization)
  Sender: FDA-Public Use
  Company Number: None

PATIENT
  Age: 62 Year
  Sex: Male
  Weight: 113.3993 kg

DRUGS (1)
  1. METFORMIN HCL [Suspect]
     Indication: DIABETES MELLITUS
     Dosage: 2 TABLETS TWICE DAILY PO
     Route: 048
     Dates: start: 20040101, end: 20090901

REACTIONS (2)
  - APPARENT DEATH [None]
  - LACTIC ACIDOSIS [None]
